FAERS Safety Report 5143795-4 (Version None)
Quarter: 2006Q4

REPORT INFORMATION
  Report Type: 
  Country: None (occurrence: None)
  Receive Date: 20061106
  Receipt Date: 20060925
  Transmission Date: 20070319
  Serious: Yes (Hospitalization)
  Sender: FDA-Public Use
  Company Number: PHHO2006JP16258

PATIENT
  Age: 60 Year
  Sex: Male
  Weight: 52 kg

DRUGS (3)
  1. DIOVAN [Suspect]
     Indication: HYPERTENSION
     Dosage: 40 MG, QD
     Route: 048
     Dates: start: 20040403, end: 20050310
  2. DIOVAN [Suspect]
     Dosage: 80 MG, QD
     Route: 048
     Dates: start: 20050311
  3. NORVASC [Suspect]
     Indication: HYPERTENSION
     Dosage: 5 MG, QD
     Route: 048
     Dates: start: 20040220

REACTIONS (5)
  - ANAEMIA [None]
  - DYSPNOEA [None]
  - FAECES DISCOLOURED [None]
  - GASTRIC ULCER HAEMORRHAGE [None]
  - UPPER RESPIRATORY TRACT INFLAMMATION [None]
